FAERS Safety Report 8263642-1 (Version None)
Quarter: 2012Q2

REPORT INFORMATION
  Report Type: 
  Country: None (occurrence: None)
  Receive Date: 20120405
  Receipt Date: 20120328
  Transmission Date: 20120825
  Serious: Yes (Other)
  Sender: FDA-Public Use
  Company Number: US-ABBOTT-12P-163-0919832-00

PATIENT
  Sex: Female
  Weight: 74.456 kg

DRUGS (10)
  1. XANAX [Concomitant]
     Indication: ANXIETY
  2. FENTANYL [Concomitant]
     Indication: PAIN
     Dosage: PATCH
  3. METFORMIN HCL [Concomitant]
     Indication: DIABETES MELLITUS
  4. POTASSIUM [Concomitant]
     Indication: MINERAL SUPPLEMENTATION
  5. HUMIRA [Suspect]
     Indication: CROHN'S DISEASE
     Dates: start: 20101001, end: 20101201
  6. VITAMIN B-12 [Concomitant]
     Indication: VITAMIN SUPPLEMENTATION
     Dosage: EOW
  7. TRAZODONE HCL [Concomitant]
     Indication: INSOMNIA
  8. DEPO-PROVERA [Concomitant]
     Indication: CONTRACEPTION
  9. HUMIRA [Suspect]
     Dates: start: 20110401
  10. ZOLOFT [Concomitant]
     Indication: DEPRESSION

REACTIONS (11)
  - INTESTINAL FISTULA [None]
  - ANAL FISTULA [None]
  - FISTULA DISCHARGE [None]
  - PAIN [None]
  - SKIN BURNING SENSATION [None]
  - CROHN'S DISEASE [None]
  - IMPAIRED HEALING [None]
  - INTESTINAL FISTULA INFECTION [None]
  - POSTOPERATIVE WOUND INFECTION [None]
  - WOUND INFECTION [None]
  - ABSCESS [None]
